FAERS Safety Report 6124475-5 (Version None)
Quarter: 2009Q1

REPORT INFORMATION
  Report Type: 
  Country: None (occurrence: None)
  Receive Date: 20090319
  Receipt Date: 20090316
  Transmission Date: 20090719
  Serious: Yes (Death)
  Sender: FDA-Public Use
  Company Number: PHHY2009JP09629

PATIENT
  Age: 77 Year
  Sex: Male

DRUGS (1)
  1. VOLTAREN [Suspect]
     Dosage: UNK
     Route: 054
     Dates: start: 20060101, end: 20070801

REACTIONS (2)
  - PANCYTOPENIA [None]
  - PNEUMONIA [None]
